FAERS Safety Report 8539177-5 (Version None)
Quarter: 2012Q3

REPORT INFORMATION
  Report Type: 
  Country: None (occurrence: None)
  Receive Date: 20120726
  Receipt Date: 20120723
  Transmission Date: 20120928
  Serious: Yes (Other)
  Sender: FDA-Public Use
  Company Number: US-PFIZER INC-2012178662

PATIENT
  Sex: Female
  Weight: 62.585 kg

DRUGS (1)
  1. LIPITOR [Suspect]
     Indication: BLOOD CHOLESTEROL INCREASED
     Dosage: 20 MG DALY
     Dates: start: 20020101, end: 20120101

REACTIONS (2)
  - CONSTIPATION [None]
  - COLON CANCER STAGE IV [None]
